FAERS Safety Report 12079660 (Version 1)
Quarter: 2016Q1

REPORT INFORMATION
  Report Type: Spontaneous
  Country: US (occurrence: None)
  Receive Date: 20160212
  Receipt Date: 20160212
  Transmission Date: 20160526
  Serious: Yes (Life-Threatening, Hospitalization)
  Sender: FDA-Public Use
  Company Number: None

PATIENT
  Age: 56 Year
  Sex: Male
  Weight: 97.7 kg

DRUGS (1)
  1. AMIODARONE [Suspect]
     Active Substance: AMIODARONE
     Indication: ATRIAL FIBRILLATION
     Dosage: EVERY DAY
     Route: 048
     Dates: start: 20140620, end: 20160127

REACTIONS (7)
  - Toxicity to various agents [None]
  - Ascites [None]
  - Pneumonia legionella [None]
  - Hepatic cirrhosis [None]
  - Pulmonary fibrosis [None]
  - Hepatic enzyme increased [None]
  - Asthenia [None]

NARRATIVE: CASE EVENT DATE: 20160127
